FAERS Safety Report 4676069-6 (Version None)
Quarter: 2005Q2

REPORT INFORMATION
  Report Type: 
  Country: None (occurrence: None)
  Receive Date: 20050527
  Receipt Date: 20050322
  Transmission Date: 20051028
  Serious: No
  Sender: FDA-Public Use
  Company Number: US-GLAXOSMITHKLINE-A0550855A

PATIENT
  Age: 57 Year
  Sex: Female

DRUGS (17)
  1. WELLBUTRIN XL [Suspect]
     Dosage: 300MG SINGLE DOSE
     Route: 048
     Dates: start: 20050309, end: 20050309
  2. COZAAR [Concomitant]
  3. HYDROCHLOROTHIAZIDE [Concomitant]
  4. THEOPHYLLINE [Concomitant]
  5. SYNTHROID [Concomitant]
  6. CORGARD [Concomitant]
  7. COMBIVENT [Concomitant]
  8. LOPID [Concomitant]
  9. FLONASE [Concomitant]
  10. MOTRIN [Concomitant]
  11. METHOTREXATE [Concomitant]
  12. FOLIC ACID [Concomitant]
  13. GLUCOPHAGE [Concomitant]
  14. PEPCID [Concomitant]
  15. TUMS [Concomitant]
  16. SOY PROTEIN [Concomitant]
  17. GARLIC CAPSULE [Concomitant]

REACTIONS (2)
  - HYPOAESTHESIA [None]
  - IRRITABILITY [None]
